FAERS Safety Report 15546534 (Version 2)
Quarter: 2021Q3

REPORT INFORMATION
  Report Type: Report from Study
  Country: FR (occurrence: FR)
  Receive Date: 20181024
  Receipt Date: 20210820
  Transmission Date: 20211014
  Serious: Yes (Hospitalization)
  Sender: FDA-Public Use
  Company Number: FR-JNJFOC-20181014856

PATIENT
  Age: 24 Year
  Sex: Male
  Weight: 46 kg

DRUGS (3)
  1. STELARA [Suspect]
     Active Substance: USTEKINUMAB
     Indication: CROHN^S DISEASE
     Route: 058
     Dates: start: 20170127
  2. MOVICOL [Concomitant]
     Active Substance: POLYETHYLENE GLYCOL 3350\POTASSIUM CHLORIDE\SODIUM BICARBONATE\SODIUM CHLORIDE
     Indication: CROHN^S DISEASE
     Route: 048
     Dates: start: 201703, end: 20180219
  3. STELARA [Suspect]
     Active Substance: USTEKINUMAB
     Route: 058
     Dates: start: 201710

REACTIONS (3)
  - Crohn^s disease [Recovered/Resolved with Sequelae]
  - Perirectal abscess [Recovered/Resolved with Sequelae]
  - Anorectal stenosis [Recovered/Resolved with Sequelae]

NARRATIVE: CASE EVENT DATE: 2018
